FAERS Safety Report 19087080 (Version 1)
Quarter: 2021Q2

REPORT INFORMATION
  Report Type: Spontaneous
  Country: EG (occurrence: EG)
  Receive Date: 20210402
  Receipt Date: 20210402
  Transmission Date: 20210717
  Serious: Yes (Other)
  Sender: FDA-Public Use
  Company Number: EG-MYLANLABS-2021M1019351

PATIENT
  Age: 58 Year
  Sex: Female

DRUGS (6)
  1. CARBOPLATIN MYLAN [Suspect]
     Active Substance: CARBOPLATIN
     Indication: OVARIAN CANCER
  2. UNITAXEL [Suspect]
     Active Substance: PACLITAXEL
     Indication: UTERINE CANCER
     Dosage: 350 MILLIGRAM FROM 2 DIFFERENT STRENGTHS
     Route: 042
  3. UNITAXEL [Suspect]
     Active Substance: PACLITAXEL
     Indication: UTERINE CANCER
     Dosage: 350 MILLIGRAM FROM 2 DIFFERENT STRENGTHS
     Route: 042
  4. CARBOPLATIN MYLAN [Suspect]
     Active Substance: CARBOPLATIN
     Indication: UTERINE CANCER
     Dosage: UNK (450 MG/45ML)
     Dates: start: 20210131
  5. UNITAXEL [Suspect]
     Active Substance: PACLITAXEL
     Indication: OVARIAN CANCER
  6. UNITAXEL [Suspect]
     Active Substance: PACLITAXEL
     Indication: OVARIAN CANCER

REACTIONS (6)
  - Pain [Not Recovered/Not Resolved]
  - Headache [Unknown]
  - Ascites [Unknown]
  - Hypoaesthesia [Unknown]
  - Vomiting [Unknown]
  - Dyspnoea [Unknown]
